FAERS Safety Report 6725867-3 (Version None)
Quarter: 2010Q2

REPORT INFORMATION
  Report Type: 
  Country: None (occurrence: None)
  Receive Date: 20100514
  Receipt Date: 20100510
  Transmission Date: 20101027
  Serious: Yes (Death, Other)
  Sender: FDA-Public Use
  Company Number: PHHY2010GB29521

PATIENT
  Age: 68 Year
  Sex: Male

DRUGS (6)
  1. ENTACAPONE [Suspect]
     Indication: PARKINSON'S DISEASE
     Dosage: 400 MG PER DAY
     Dates: start: 20060101
  2. L-DOPA/CARBIDOPA [Suspect]
     Indication: PARKINSON'S DISEASE
     Dosage: 300 MG PER DAY OF LEVODOPA
  3. L-DOPA/CARBIDOPA [Suspect]
     Dosage: 700 MG PER DAY OF LEVODOPA
     Dates: start: 20060101
  4. L-DOPA/CARBIDOPA [Suspect]
     Dosage: 1400 MG PER DAY OF LEVODOPA
     Dates: start: 20070101
  5. ROPINIROLE [Suspect]
     Indication: PARKINSON'S DISEASE
     Dosage: 9 MG PER DAY
  6. ROPINIROLE [Suspect]
     Dosage: 15 MG PER DAY
     Dates: start: 20060101

REACTIONS (6)
  - BALANCE DISORDER [None]
  - CEREBRAL ATROPHY [None]
  - HALLUCINATION, VISUAL [None]
  - HYPERSEXUALITY [None]
  - PARKINSON'S DISEASE [None]
  - SUPRANUCLEAR PALSY [None]
